FAERS Safety Report 7533040-4 (Version None)
Quarter: 2011Q2

REPORT INFORMATION
  Report Type: 
  Country: None (occurrence: None)
  Receive Date: 20110608
  Receipt Date: 20110525
  Transmission Date: 20111010
  Serious: Yes (Hospitalization)
  Sender: FDA-Public Use
  Company Number: IT-UCBSA-033995

PATIENT
  Sex: Female

DRUGS (3)
  1. KEPPRA [Suspect]
     Indication: EPILEPSY
     Dosage: 500 MG 30 TABLETS
     Route: 048
     Dates: start: 20110401, end: 20110501
  2. DEPAKENE [Suspect]
     Indication: ENCEPHALOPATHY
     Dosage: 500 MG 40 TABLETS
     Route: 048
     Dates: start: 20110401, end: 20110501
  3. TEGRETOL [Suspect]
     Indication: EPILEPSY
     Dosage: 100 MG 28 CHEWABLE TABLETS
     Route: 048
     Dates: start: 20110401, end: 20110501

REACTIONS (1)
  - DYSTONIA [None]
